FAERS Safety Report 19059943 (Version 1)
Quarter: 2021Q1

REPORT INFORMATION
  Report Type: Spontaneous
  Country: US (occurrence: US)
  Receive Date: 20210325
  Receipt Date: 20210325
  Transmission Date: 20210420
  Serious: Yes (Other)
  Sender: FDA-Public Use
  Company Number: US-GLAXOSMITHKLINE-US2021GSK064937

PATIENT
  Sex: Female

DRUGS (18)
  1. ZANTAC [Suspect]
     Active Substance: RANITIDINE HYDROCHLORIDE
     Indication: DYSPEPSIA
     Dosage: 300 MG, 2X/DAY
     Route: 065
     Dates: start: 200801, end: 202001
  2. RANITIDINE CAPSULE [Suspect]
     Active Substance: RANITIDINE
     Indication: DYSPEPSIA
     Dosage: 300 MG, 2X/DAY
     Route: 065
     Dates: start: 200801, end: 202001
  3. RANITIDINE. [Suspect]
     Active Substance: RANITIDINE
     Indication: ABDOMINAL PAIN UPPER
  4. RANITIDINE CAPSULE [Suspect]
     Active Substance: RANITIDINE
     Indication: GASTROOESOPHAGEAL REFLUX DISEASE
  5. ZANTAC [Suspect]
     Active Substance: RANITIDINE HYDROCHLORIDE
     Indication: GASTROOESOPHAGEAL REFLUX DISEASE
  6. ZANTAC [Suspect]
     Active Substance: RANITIDINE HYDROCHLORIDE
     Indication: GASTROOESOPHAGEAL REFLUX DISEASE
  7. RANITIDINE. [Suspect]
     Active Substance: RANITIDINE
     Indication: DYSPEPSIA
     Dosage: 300 MG, 2X/DAY
     Route: 065
     Dates: start: 200801, end: 202007
  8. RANITIDINE CAPSULE [Suspect]
     Active Substance: RANITIDINE
     Indication: ABDOMINAL PAIN UPPER
  9. ZANTAC [Suspect]
     Active Substance: RANITIDINE HYDROCHLORIDE
     Indication: GASTROOESOPHAGEAL REFLUX DISEASE
  10. RANITIDINE CAPSULE [Suspect]
     Active Substance: RANITIDINE
     Indication: ABDOMINAL PAIN UPPER
  11. ZANTAC [Suspect]
     Active Substance: RANITIDINE HYDROCHLORIDE
     Indication: DYSPEPSIA
     Dosage: 300 MG, 2X/DAY
     Route: 065
     Dates: start: 200801, end: 202001
  12. RANITIDINE. [Suspect]
     Active Substance: RANITIDINE
     Indication: GASTROOESOPHAGEAL REFLUX DISEASE
  13. ZANTAC [Suspect]
     Active Substance: RANITIDINE HYDROCHLORIDE
     Indication: DYSPEPSIA
     Dosage: 300 MG, 2X/DAY
     Route: 065
     Dates: start: 200801, end: 202001
  14. ZANTAC [Suspect]
     Active Substance: RANITIDINE HYDROCHLORIDE
     Indication: ABDOMINAL PAIN UPPER
  15. RANITIDINE CAPSULE [Suspect]
     Active Substance: RANITIDINE
     Indication: DYSPEPSIA
     Dosage: 300 MG, 2X/DAY
     Route: 065
     Dates: start: 200801, end: 202007
  16. ZANTAC [Suspect]
     Active Substance: RANITIDINE HYDROCHLORIDE
     Indication: ABDOMINAL PAIN UPPER
  17. ZANTAC [Suspect]
     Active Substance: RANITIDINE HYDROCHLORIDE
     Indication: ABDOMINAL PAIN UPPER
  18. RANITIDINE CAPSULE [Suspect]
     Active Substance: RANITIDINE
     Indication: GASTROOESOPHAGEAL REFLUX DISEASE

REACTIONS (1)
  - Breast cancer [Unknown]
